FAERS Safety Report 5811843-1 (Version None)
Quarter: 2008Q3

REPORT INFORMATION
  Report Type: 
  Country: None (occurrence: None)
  Receive Date: 20080716
  Receipt Date: 20080714
  Transmission Date: 20090109
  Serious: Yes (Hospitalization)
  Sender: FDA-Public Use
  Company Number: GB-BRISTOL-MYERS SQUIBB COMPANY-14263560

PATIENT
  Sex: Male
  Weight: 78 kg

DRUGS (4)
  1. ENTECAVIR [Suspect]
     Indication: HIV INFECTION
     Route: 048
     Dates: start: 20071215
  2. ATAZANAVIR [Concomitant]
     Indication: HIV INFECTION
     Route: 048
     Dates: start: 20050801
  3. RITONAVIR [Concomitant]
     Indication: HIV INFECTION
     Route: 048
     Dates: start: 20050901
  4. TRUVADA [Concomitant]
     Indication: HIV INFECTION
     Route: 048
     Dates: start: 20050901

REACTIONS (1)
  - PORTAL VEIN THROMBOSIS [None]
